FAERS Safety Report 6556606-7 (Version None)
Quarter: 2010Q1

REPORT INFORMATION
  Report Type: 
  Country: None (occurrence: None)
  Receive Date: 20100128
  Receipt Date: 20100118
  Transmission Date: 20100710
  Serious: Yes (Other)
  Sender: FDA-Public Use
  Company Number: ES-JNJFOC-20100106645

PATIENT
  Age: 2 Year
  Sex: Female

DRUGS (3)
  1. REMICADE [Suspect]
     Indication: COLITIS
     Route: 042
     Dates: end: 20090917
  2. REMICADE [Suspect]
     Route: 042
     Dates: end: 20090917
  3. REMICADE [Suspect]
     Route: 042
     Dates: end: 20090917

REACTIONS (5)
  - BRONCHOSPASM [None]
  - DYSPNOEA [None]
  - INFUSION RELATED REACTION [None]
  - RASH [None]
  - URTICARIA [None]
